FAERS Safety Report 5812299-5 (Version None)
Quarter: 2008Q3

REPORT INFORMATION
  Report Type: 
  Country: None (occurrence: None)
  Receive Date: 20080716
  Receipt Date: 20080708
  Transmission Date: 20090109
  Serious: Yes (Other)
  Sender: FDA-Public Use
  Company Number: US-PFIZER INC-2008056793

PATIENT
  Sex: Male
  Weight: 90.7 kg

DRUGS (4)
  1. DETROL LA [Suspect]
     Indication: MICTURITION DISORDER
     Dates: start: 20080301, end: 20080301
  2. PLAVIX [Concomitant]
  3. ZOCOR [Concomitant]
  4. METOPROLOL TARTRATE [Concomitant]

REACTIONS (5)
  - BACK PAIN [None]
  - CONTUSION [None]
  - DEAFNESS [None]
  - HYPOTENSION [None]
  - LOSS OF CONSCIOUSNESS [None]
